FAERS Safety Report 7642603-7 (Version None)
Quarter: 2011Q3

REPORT INFORMATION
  Report Type: 
  Country: None (occurrence: None)
  Receive Date: 20110728
  Receipt Date: 20110726
  Transmission Date: 20111222
  Serious: Yes (Death)
  Sender: FDA-Public Use
  Company Number: US-PFIZER INC-2011128839

PATIENT
  Sex: Female

DRUGS (14)
  1. LYRICA [Suspect]
     Indication: NEUROPATHY PERIPHERAL
     Dosage: UNK
     Route: 048
     Dates: start: 20110301, end: 20110101
  2. LYRICA [Suspect]
     Indication: NEURALGIA
     Dosage: 75 MG, 3X/DAY
     Dates: start: 20110101
  3. ZONEGRAN [Concomitant]
     Dosage: 400 MG, DAILY
     Route: 048
  4. GLUCOSAMINE HYDROCHLORIDE/CHONDROITIN SULFATE [Concomitant]
     Dosage: 750/600 MG
     Route: 048
  5. IBUPROFEN [Concomitant]
     Dosage: 400 MG, DAILY
     Route: 048
  6. TYLENOL-500 [Concomitant]
     Dosage: 650 MG, AS NEEDED
     Route: 048
  7. DULCOLAX [Concomitant]
     Dosage: 10 MG,DAILY
     Route: 048
  8. METHADONE [Concomitant]
     Dosage: 5 MG, 3X/DAY
     Route: 048
  9. LIDOCAINE [Concomitant]
     Dosage: 5% 2 PATCHES AS NEEDED
     Route: 062
  10. DOXYCIN [Concomitant]
     Dosage: 300 MG,DAILY
     Route: 048
  11. VITAMIN E [Concomitant]
     Dosage: 800 IU, DAILY
     Route: 048
  12. KLONOPIN [Concomitant]
     Dosage: 0.5 MG, DAILY
     Route: 048
  13. VICODIN [Concomitant]
     Dosage: 10 MG, 2X/DAY
     Route: 048
  14. FLONASE [Concomitant]
     Dosage: UNK

REACTIONS (1)
  - DEATH [None]
